FAERS Safety Report 20910483 (Version 4)
Quarter: 2022Q3

REPORT INFORMATION
  Report Type: Spontaneous
  Country: CO (occurrence: CO)
  Receive Date: 20220603
  Receipt Date: 20220729
  Transmission Date: 20221027
  Serious: Yes (Hospitalization, Other)
  Sender: FDA-Public Use
  Company Number: CO-BAYER-2022A069039

PATIENT
  Age: 72 Year
  Sex: Female

DRUGS (13)
  1. XARELTO [Suspect]
     Active Substance: RIVAROXABAN
     Indication: Product used for unknown indication
     Dosage: 20 MG
     Route: 048
     Dates: start: 202106
  2. ADEMPAS [Suspect]
     Active Substance: RIOCIGUAT
     Indication: Pulmonary arterial hypertension
     Dosage: 2.5 MG, Q8HR
     Route: 048
     Dates: start: 20220216, end: 20220711
  3. LEVOTHYROXINE [Concomitant]
     Active Substance: LEVOTHYROXINE
     Indication: Hypothyroidism
     Dosage: UNK
  4. JARDIANCE [Concomitant]
     Active Substance: EMPAGLIFLOZIN
     Indication: Diabetes mellitus
  5. LETROZOLE [Concomitant]
     Active Substance: LETROZOLE
     Indication: Breast cancer
     Dosage: UNK
  6. SPIRONOLACTONE [Concomitant]
     Active Substance: SPIRONOLACTONE
     Dosage: UNK
  7. FUROSEMIDE [Concomitant]
     Active Substance: FUROSEMIDE
     Indication: Fluid retention
     Dosage: UNK
  8. INSULIN GLULISINE [Concomitant]
     Active Substance: INSULIN GLULISINE
     Dosage: UNK
  9. INSULIN GLARGINE [Concomitant]
     Active Substance: INSULIN GLARGINE
     Dosage: UNK
  10. OXYGEN [Concomitant]
     Active Substance: OXYGEN
     Dosage: UNK
  11. OXYGEN [Concomitant]
     Active Substance: OXYGEN
     Dosage: 3 L
  12. DIPYRONE [Concomitant]
     Active Substance: DIPYRONE
     Indication: Pain
  13. ESOMEPRAZOLE [Concomitant]
     Active Substance: ESOMEPRAZOLE
     Indication: Gastrointestinal disorder prophylaxis
     Dosage: UNK

REACTIONS (21)
  - Hypertension [Unknown]
  - Chest pain [Unknown]
  - Gait disturbance [Unknown]
  - Balance disorder [Unknown]
  - Speech disorder [Not Recovered/Not Resolved]
  - Product dose omission issue [Unknown]
  - Vaginal haemorrhage [Unknown]
  - Vaginal haemorrhage [Unknown]
  - Dyspnoea [Unknown]
  - Tachypnoea [Recovered/Resolved]
  - Dyspnoea exertional [Recovered/Resolved]
  - Oedema peripheral [Recovered/Resolved]
  - Oxygen saturation decreased [Unknown]
  - Gastritis [Recovered/Resolved]
  - Fatigue [Recovered/Resolved]
  - Productive cough [Recovered/Resolved]
  - Nasal congestion [Recovered/Resolved]
  - Chills [Recovered/Resolved]
  - Chronic obstructive pulmonary disease [Recovered/Resolved]
  - Lung disorder [Recovered/Resolved]
  - Urinary tract infection [Recovered/Resolved]

NARRATIVE: CASE EVENT DATE: 20220301
